FAERS Safety Report 11539296 (Version 1)
Quarter: 2015Q3

REPORT INFORMATION
  Report Type: Spontaneous
  Country: US (occurrence: None)
  Receive Date: 20150922
  Receipt Date: 20150922
  Transmission Date: 20151125
  Serious: Yes (Hospitalization)
  Sender: FDA-Public Use
  Company Number: None

PATIENT
  Age: 25 Year
  Sex: Female
  Weight: 59.42 kg

DRUGS (5)
  1. MAKENA [Concomitant]
     Active Substance: HYDROXYPROGESTERONE CAPROATE
  2. MAKENA [Suspect]
     Active Substance: HYDROXYPROGESTERONE CAPROATE
     Indication: POSTPONEMENT OF PRETERM DELIVERY
     Dosage: 1 ML (250 MG)
     Route: 030
     Dates: start: 20130328, end: 20130711
  3. ONE A DAY PRENATAL WITH DHA [Concomitant]
  4. CLARITIN [Concomitant]
     Active Substance: LORATADINE
  5. TYLENOL [Concomitant]
     Active Substance: ACETAMINOPHEN

REACTIONS (8)
  - Maternal exposure during pregnancy [None]
  - Pregnancy [None]
  - Diarrhoea [None]
  - Caesarean section [None]
  - Oligohydramnios [None]
  - Depression [None]
  - Gestational diabetes [None]
  - Premature delivery [None]

NARRATIVE: CASE EVENT DATE: 20130721
